FAERS Safety Report 7150826-9 (Version None)
Quarter: 2010Q4

REPORT INFORMATION
  Report Type: 
  Country: None (occurrence: None)
  Receive Date: 20101126
  Receipt Date: 20101118
  Transmission Date: 20110411
  Serious: Yes (Hospitalization, Other)
  Sender: FDA-Public Use
  Company Number: 2010SP036628

PATIENT
  Age: 66 Year
  Sex: Male

DRUGS (10)
  1. MIRTAZAPINE [Suspect]
     Indication: DEPRESSIVE SYMPTOM
     Dosage: PO
     Route: 048
     Dates: end: 20090501
  2. MIRTAZAPINE [Suspect]
     Indication: DEPRESSIVE SYMPTOM
     Dosage: PO
     Route: 048
     Dates: start: 20090623, end: 20090720
  3. ESCITALOPRAM [Suspect]
     Indication: DEPRESSIVE SYMPTOM
     Dosage: 10 MG BID, PO; 10 MG, BID PO; 5 MG QD PO;
     Dates: end: 20090501
  4. ESCITALOPRAM [Suspect]
     Indication: DEPRESSIVE SYMPTOM
     Dosage: 10 MG BID, PO; 10 MG, BID PO; 5 MG QD PO;
     Dates: start: 20090623, end: 20090720
  5. ESCITALOPRAM [Suspect]
     Indication: DEPRESSIVE SYMPTOM
     Dosage: 10 MG BID, PO; 10 MG, BID PO; 5 MG QD PO;
     Dates: start: 20090720
  6. FENOFIBRATE [Suspect]
     Indication: PRODUCT USED FOR UNKNOWN INDICATION
     Dosage: PO
     Route: 048
     Dates: end: 20090701
  7. TERALITHE [Concomitant]
  8. SERESTA [Concomitant]
  9. LARGACTIL [Concomitant]
  10. IMOVANE [Concomitant]

REACTIONS (7)
  - AGITATION [None]
  - ANXIETY [None]
  - CYTOLYTIC HEPATITIS [None]
  - HYPOMANIA [None]
  - LOGORRHOEA [None]
  - MAJOR DEPRESSION [None]
  - TACHYPHRENIA [None]
